FAERS Safety Report 23835957 (Version 1)
Quarter: 2024Q2

REPORT INFORMATION
  Report Type: Report from Study
  Country: CA (occurrence: CA)
  Receive Date: 20240509
  Receipt Date: 20240509
  Transmission Date: 20240716
  Serious: Yes (Death)
  Sender: FDA-Public Use
  Company Number: CA-BEH-2024171809

PATIENT
  Age: 60 Year
  Sex: Male
  Weight: 47.5 kg

DRUGS (11)
  1. HIZENTRA [Suspect]
     Active Substance: HUMAN IMMUNOGLOBULIN G
     Indication: Secondary immunodeficiency
     Dosage: 6 G, QW
     Route: 065
     Dates: start: 20210730
  2. FUROSEMIDE [Concomitant]
     Active Substance: FUROSEMIDE
  3. AMLODIPINE [Concomitant]
     Active Substance: AMLODIPINE BESYLATE
  4. MEPRON [Concomitant]
     Active Substance: ATOVAQUONE
  5. ENTECAVIR [Concomitant]
     Active Substance: ENTECAVIR
  6. ARANESP [Concomitant]
     Active Substance: DARBEPOETIN ALFA
  7. ZOPICLONE [Concomitant]
     Active Substance: ZOPICLONE
     Dosage: UNK, PRN
  8. ALLOPURINOL [Concomitant]
     Active Substance: ALLOPURINOL
  9. PREDNISONE [Concomitant]
     Active Substance: PREDNISONE
  10. METOPROLOL [Concomitant]
     Active Substance: METOPROLOL
  11. NEORAL [Concomitant]
     Active Substance: CYCLOSPORINE

REACTIONS (1)
  - Death [Fatal]
